FAERS Safety Report 9200909 (Version 2)
Quarter: 2013Q2

REPORT INFORMATION
  Report Type: Spontaneous
  Country: GR (occurrence: None)
  Receive Date: 20130327
  Receipt Date: 20130417
  Transmission Date: 20140414
  Serious: Yes (Other)
  Sender: FDA-Public Use
  Company Number: AUR-APL-2013-02571

PATIENT
  Age: 76 Year
  Sex: Female

DRUGS (3)
  1. ALENDRONIC ACID (ALENDRONIC ACID) [Suspect]
     Route: 048
  2. VITAMIN D SUPPLEMENTS (ERGOCALCIFEROL) [Concomitant]
  3. CALCIUM (CALCIUM) [Concomitant]

REACTIONS (3)
  - Back pain [None]
  - Spinal compression fracture [None]
  - Osteoporotic fracture [None]
